FAERS Safety Report 8617364-5 (Version None)
Quarter: 2012Q3

REPORT INFORMATION
  Report Type: 
  Country: None (occurrence: None)
  Receive Date: 20120823
  Receipt Date: 20120814
  Transmission Date: 20120928
  Serious: Yes (Hospitalization, Disabling, Other)
  Sender: FDA-Public Use
  Company Number: US-009507513-1206USA04947

PATIENT

DRUGS (10)
  1. FOSAMAX [Suspect]
     Dosage: 40 MG, 2 Q SUNDAY
     Route: 048
     Dates: start: 20000904
  2. FOSAMAX [Suspect]
     Indication: OSTEOPOROSIS
     Dosage: UNK
     Route: 048
     Dates: start: 19970101, end: 20080529
  3. VITAMINS (UNSPECIFIED) [Concomitant]
     Dosage: UNK, QD
     Dates: start: 19900101, end: 20120101
  4. MOTRIN [Concomitant]
     Indication: PAIN IN EXTREMITY
  5. CORTISONE ACETATE [Concomitant]
     Indication: ARTHRALGIA
  6. SELECTIVE ESTROGEN RECEPTOR MODULATOR (UNSPECIFIED) [Concomitant]
     Dosage: UNK
     Dates: start: 19900101, end: 20080101
  7. FOSAMAX [Suspect]
     Dosage: 70 MG, QW
     Route: 048
     Dates: start: 20011120
  8. CORTICOSTEROIDS (UNSPECIFIED) [Concomitant]
     Dosage: UNK
     Dates: start: 19940101, end: 20070101
  9. MOTRIN [Concomitant]
     Indication: ARTHRALGIA
  10. RECLAST [Concomitant]
     Indication: OSTEOPOROSIS

REACTIONS (20)
  - CLOSED FRACTURE MANIPULATION [None]
  - ANAEMIA [None]
  - BONE LESION [None]
  - BURSITIS [None]
  - BREAST CYST EXCISION [None]
  - FALL [None]
  - SEASONAL ALLERGY [None]
  - FEMUR FRACTURE [None]
  - INSOMNIA [None]
  - MUSCULOSKELETAL PAIN [None]
  - ARTHRALGIA [None]
  - STRESS FRACTURE [None]
  - ASTHMA [None]
  - LOW TURNOVER OSTEOPATHY [None]
  - OSTEOPOROSIS [None]
  - VITAMIN D DEFICIENCY [None]
  - ARTHROPATHY [None]
  - INAPPROPRIATE SCHEDULE OF DRUG ADMINISTRATION [None]
  - OROPHARYNGEAL PAIN [None]
  - BREAST CYST [None]
